FAERS Safety Report 9207369 (Version 2)
Quarter: 2014Q1

REPORT INFORMATION
  Report Type: Spontaneous
  Country: US (occurrence: US)
  Receive Date: 20130403
  Receipt Date: 20140129
  Transmission Date: 20141002
  Serious: Yes (Other)
  Sender: FDA-Public Use
  Company Number: US-BAYER-2013-039725

PATIENT
  Age: 28 Year
  Sex: Female

DRUGS (7)
  1. YAZ [Suspect]
     Dosage: UNK
     Dates: start: 200609
  2. YASMIN [Suspect]
     Dosage: UNK
     Dates: start: 200609
  3. OCELLA [Suspect]
     Dosage: UNK
     Dates: start: 200609
  4. SINGULAIR [Concomitant]
     Dosage: 10 MG, UNK
  5. PRILOSEC [Concomitant]
  6. LORATADINE [Concomitant]
  7. ACID REDUCER [Concomitant]

REACTIONS (8)
  - Gallbladder disorder [None]
  - Biliary dyskinesia [None]
  - Cholecystitis [None]
  - Injury [None]
  - Pain [None]
  - Emotional distress [None]
  - Anxiety [None]
  - Psychological trauma [None]
